FAERS Safety Report 15546799 (Version 1)
Quarter: 2018Q4

REPORT INFORMATION
  Report Type: Spontaneous
  Country: US (occurrence: US)
  Receive Date: 20181018
  Receipt Date: 20181018
  Transmission Date: 20190205
  Serious: No
  Sender: FDA-Public Use
  Company Number: None

PATIENT
  Age: 55 Year
  Sex: Female
  Weight: 136.08 kg

DRUGS (5)
  1. ENBREL [Suspect]
     Active Substance: ETANERCEPT
     Indication: OSTEOARTHRITIS
     Route: 058
     Dates: start: 201407
  2. ENBREL [Suspect]
     Active Substance: ETANERCEPT
     Indication: RHEUMATIC DISORDER
  3. ENBREL [Suspect]
     Active Substance: ETANERCEPT
     Indication: RHEUMATIC DISORDER
     Route: 058
     Dates: start: 201407
  4. ENBREL [Suspect]
     Active Substance: ETANERCEPT
     Indication: RHEUMATOID ARTHRITIS
     Route: 058
     Dates: start: 201407
  5. ENBREL [Suspect]
     Active Substance: ETANERCEPT
     Indication: OSTEOARTHRITIS

REACTIONS (4)
  - Therapy cessation [None]
  - Pain [None]
  - Pulmonary mass [None]
  - Lung operation [None]
